FAERS Safety Report 4875786-2 (Version None)
Quarter: 2006Q1

REPORT INFORMATION
  Report Type: 
  Country: None (occurrence: None)
  Receive Date: 20060104
  Receipt Date: 20051226
  Transmission Date: 20060701
  Serious: Yes (Other)
  Sender: FDA-Public Use
  Company Number: 2005-10-1659

PATIENT
  Sex: Female

DRUGS (4)
  1. CLARITIN [Suspect]
     Indication: ECZEMA
     Dosage: 10 MG ORAL; SEE IMAGE
     Route: 048
     Dates: start: 20050707, end: 20050714
  2. CLARITIN [Suspect]
     Indication: PRURITUS
     Dosage: 10 MG ORAL; SEE IMAGE
     Route: 048
     Dates: start: 20050707, end: 20050714
  3. CLARITIN [Suspect]
     Indication: ECZEMA
     Dosage: 10 MG ORAL; SEE IMAGE
     Route: 048
     Dates: start: 20050822, end: 20050829
  4. CLARITIN [Suspect]
     Indication: PRURITUS
     Dosage: 10 MG ORAL; SEE IMAGE
     Route: 048
     Dates: start: 20050822, end: 20050829

REACTIONS (3)
  - BLOOD CREATINE PHOSPHOKINASE INCREASED [None]
  - HERPES ZOSTER [None]
  - PARAESTHESIA [None]
